FAERS Safety Report 9836705 (Version 1)
Quarter: 2013Q4

REPORT INFORMATION
  Report Type: Spontaneous
  Country: US (occurrence: None)
  Receive Date: 20131127
  Receipt Date: 20131127
  Transmission Date: 20140711
  Serious: No
  Sender: FDA-Public Use
  Company Number: 223842

PATIENT
  Sex: Female

DRUGS (1)
  1. PICATO [Suspect]
     Dosage: 1 IN 1 D STARTED 3 WEEKS AGO AND STOPPED 3 DAYS AFTER USED 1 YEAR AGO
     Route: 061

REACTIONS (6)
  - Tongue exfoliation [None]
  - Tongue coated [None]
  - Hypoaesthesia [None]
  - Dysgeusia [None]
  - Inappropriate schedule of drug administration [None]
  - Drug administered at inappropriate site [None]
